FAERS Safety Report 13295650 (Version 1)
Quarter: 2017Q1

REPORT INFORMATION
  Report Type: Spontaneous
  Country: KR (occurrence: KR)
  Receive Date: 20170303
  Receipt Date: 20170303
  Transmission Date: 20170428
  Serious: Yes (Other)
  Sender: FDA-Public Use
  Company Number: KR-009507513-1703KOR000924

PATIENT
  Age: 23 Year
  Sex: Male
  Weight: 60.1 kg

DRUGS (20)
  1. EMEND (FOSAPREPITANT DIMEGLUMINE) [Suspect]
     Active Substance: FOSAPREPITANT DIMEGLUMINE
     Dosage: 150 MG, ONCE
     Route: 042
     Dates: start: 20161122, end: 20161122
  2. OXATIN [Concomitant]
     Indication: HYPERSENSITIVITY
     Dosage: 1 DF, BID
     Route: 048
     Dates: start: 20161101
  3. EMEND (FOSAPREPITANT DIMEGLUMINE) [Suspect]
     Active Substance: FOSAPREPITANT DIMEGLUMINE
     Indication: PROPHYLAXIS OF NAUSEA AND VOMITING
     Dosage: 150 MG, ONCE
     Route: 042
     Dates: start: 20161108, end: 20161108
  4. EMEND (FOSAPREPITANT DIMEGLUMINE) [Suspect]
     Active Substance: FOSAPREPITANT DIMEGLUMINE
     Dosage: 150 MG, ONCE
     Route: 042
     Dates: start: 20161129, end: 20161129
  5. CISPLATIN. [Concomitant]
     Active Substance: CISPLATIN
  6. CODEIN [Concomitant]
     Active Substance: CODEINE
     Indication: CANCER PAIN
     Dosage: 1 DF, TID
     Route: 048
     Dates: start: 20161108
  7. DAEYOO DEXAMETHASONE [Concomitant]
     Indication: PROPHYLAXIS OF NAUSEA AND VOMITING
     Dosage: 5 MG, ONCE
     Route: 042
     Dates: start: 20161108, end: 20161108
  8. CETIZAL [Concomitant]
     Indication: HYPERSENSITIVITY
     Dosage: 1 DF, ONCE
     Route: 048
     Dates: start: 20161101
  9. MAGNESIN (MAGNESIUM SULFATE) [Concomitant]
     Indication: PROPHYLAXIS
     Dosage: 5 ML, BID
     Route: 042
     Dates: start: 20161108, end: 20161108
  10. EMEND (FOSAPREPITANT DIMEGLUMINE) [Suspect]
     Active Substance: FOSAPREPITANT DIMEGLUMINE
     Dosage: 150 MG, ONCE
     Route: 042
     Dates: start: 20161213, end: 20161213
  11. TAXOL [Concomitant]
     Active Substance: PACLITAXEL
     Indication: GASTRIC CANCER
     Dosage: 102 MG, ONCE, CYCLE 1
     Route: 042
     Dates: start: 20161108, end: 20161108
  12. TAGAMET [Concomitant]
     Active Substance: CIMETIDINE
     Indication: PROPHYLAXIS
     Dosage: 200 MG, ONCE
     Route: 042
     Dates: start: 20161108, end: 20161108
  13. KCL HUONS 40 [Concomitant]
     Indication: HYPOKALAEMIA
     Dosage: 5 ML, BID
     Route: 042
     Dates: start: 20161108, end: 20161108
  14. EMEND (FOSAPREPITANT DIMEGLUMINE) [Suspect]
     Active Substance: FOSAPREPITANT DIMEGLUMINE
     Dosage: 150 MG, ONCE
     Route: 042
     Dates: start: 20161115, end: 20161115
  15. DEXAMETHASONE DAEWOO [Concomitant]
     Indication: PROPHYLAXIS OF NAUSEA AND VOMITING
     Dosage: 0.5 MG, ONCE
     Route: 048
     Dates: start: 20161109, end: 20161111
  16. ALOXI [Concomitant]
     Active Substance: PALONOSETRON HYDROCHLORIDE
     Indication: PROPHYLAXIS OF NAUSEA AND VOMITING
     Dosage: 5 ML, ONCE
     Route: 042
     Dates: start: 20161108, end: 20161108
  17. PLAKON [Concomitant]
     Indication: ALLERGY PROPHYLAXIS
     Dosage: 3 MG, ONCE
     Route: 042
     Dates: start: 20161108, end: 20161108
  18. PENIRAMIN [Concomitant]
     Indication: HYPERSENSITIVITY
     Dosage: 2 DF, ONCE
     Route: 048
     Dates: start: 20161101
  19. RINO EBASTEL [Concomitant]
     Indication: HYPERSENSITIVITY
     Dosage: 1 DF, ONCE
     Route: 048
     Dates: start: 20161101
  20. TYLENOL EXTENDED RELIEF CAPLETS [Concomitant]
     Active Substance: ACETAMINOPHEN
     Indication: CANCER PAIN
     Dosage: 1 DF, TID
     Route: 048
     Dates: start: 20161108, end: 20161110

REACTIONS (5)
  - Gastric cancer [Unknown]
  - Cough [Recovered/Resolved]
  - Logorrhoea [Recovered/Resolved]
  - Rash [Recovered/Resolved]
  - Nausea [Recovered/Resolved]

NARRATIVE: CASE EVENT DATE: 20161114
